FAERS Safety Report 23090225 (Version 1)
Quarter: 2023Q4

REPORT INFORMATION
  Report Type: Spontaneous
  Country: US (occurrence: None)
  Receive Date: 20231019
  Receipt Date: 20231019
  Transmission Date: 20240109
  Serious: Yes (Life-Threatening, Hospitalization)
  Sender: FDA-Public Use
  Company Number: None

PATIENT
  Age: 61 Year
  Sex: Male
  Weight: 112 kg

DRUGS (1)
  1. WARFARIN SODIUM [Suspect]
     Active Substance: WARFARIN SODIUM
     Route: 048
     Dates: end: 20221114

REACTIONS (9)
  - Therapy cessation [None]
  - Syncope [None]
  - Hypotension [None]
  - Blood lactic acid increased [None]
  - Haemoglobin decreased [None]
  - Retroperitoneal haemorrhage [None]
  - Renal cell carcinoma [None]
  - Renal haemorrhage [None]
  - Haemodialysis [None]

NARRATIVE: CASE EVENT DATE: 20221114
